FAERS Safety Report 11582869 (Version 1)
Quarter: 2015Q4

REPORT INFORMATION
  Report Type: Other
  Country: KR (occurrence: KR)
  Receive Date: 20151001
  Receipt Date: 20151001
  Transmission Date: 20160304
  Serious: Yes (Hospitalization)
  Sender: FDA-Public Use
  Company Number: KR-LUPIN PHARMACEUTICALS INC.-2015-02524

PATIENT
  Age: 56 Year
  Sex: Female

DRUGS (6)
  1. TRAZODONE [Suspect]
     Active Substance: TRAZODONE HYDROCHLORIDE
     Indication: DEPRESSION
     Dosage: 25 MG /DAY
     Route: 065
     Dates: start: 200208, end: 201304
  2. AMITRIPTYLINE [Suspect]
     Active Substance: AMITRIPTYLINE
     Dosage: 10 MG /DAY
     Route: 065
  3. TRAZODONE [Suspect]
     Active Substance: TRAZODONE HYDROCHLORIDE
     Dosage: 25 MG /DAY
     Route: 065
     Dates: start: 201405
  4. ESCITALOPRAM [Suspect]
     Active Substance: ESCITALOPRAM OXALATE
     Indication: DEPRESSION
     Dosage: 5 MG/ DAY
     Route: 065
     Dates: start: 201405
  5. AMITRIPTYLINE [Suspect]
     Active Substance: AMITRIPTYLINE
     Indication: DEPRESSION
     Dosage: 10 MG /DAY
     Route: 065
     Dates: start: 200208, end: 201304
  6. CLONAZEPAM. [Suspect]
     Active Substance: CLONAZEPAM
     Indication: DEPRESSION
     Dosage: 1.5 MG /DAY
     Route: 065
     Dates: start: 201405

REACTIONS (2)
  - Tardive dyskinesia [Not Recovered/Not Resolved]
  - Dystonia [Not Recovered/Not Resolved]
